FAERS Safety Report 24968328 (Version 2)
Quarter: 2025Q2

REPORT INFORMATION
  Report Type: Report from Study
  Country: ES (occurrence: ES)
  Receive Date: 20250214
  Receipt Date: 20250416
  Transmission Date: 20250716
  Serious: Yes (Other)
  Sender: ROCHE
  Company Number: ES-ROCHE-2866749

PATIENT

DRUGS (2)
  1. BEVACIZUMAB [Suspect]
     Active Substance: BEVACIZUMAB
     Indication: Colorectal cancer metastatic
     Route: 065
  2. TIPIRACIL HYDROCHLORIDE\TRIFLURIDINE [Suspect]
     Active Substance: TIPIRACIL HYDROCHLORIDE\TRIFLURIDINE
     Indication: Colorectal cancer metastatic
     Dosage: ON DAYS 1-5 AND 8-12 EVERY 28 DAYS
     Route: 065

REACTIONS (5)
  - Neutropenia [Unknown]
  - Asthenia [Unknown]
  - Vomiting [Unknown]
  - Anaemia [Unknown]
  - Hepatotoxicity [Unknown]
